FAERS Safety Report 16513879 (Version 1)
Quarter: 2019Q3

REPORT INFORMATION
  Report Type: Spontaneous
  Country: US (occurrence: US)
  Receive Date: 20190701
  Receipt Date: 20190701
  Transmission Date: 20191004
  Serious: No
  Sender: FDA-Public Use
  Company Number: US-ROCHE-2180019

PATIENT
  Sex: Female

DRUGS (1)
  1. KLONOPIN [Suspect]
     Active Substance: CLONAZEPAM
     Indication: RESTLESS LEGS SYNDROME
     Dosage: ONGOING:YES
     Route: 065
     Dates: start: 2000

REACTIONS (3)
  - Paranoia [Unknown]
  - Intentional product use issue [Unknown]
  - Insomnia [Unknown]
